FAERS Safety Report 13619463 (Version 1)
Quarter: 2017Q2

REPORT INFORMATION
  Report Type: Report from Study
  Country: US (occurrence: US)
  Receive Date: 20170606
  Receipt Date: 20170606
  Transmission Date: 20170830
  Serious: No
  Sender: FDA-Public Use
  Company Number: US-AMGEN-USASL2017021098

PATIENT
  Age: 87 Year
  Sex: Female

DRUGS (22)
  1. PROCRIT [Suspect]
     Active Substance: ERYTHROPOIETIN
     Dosage: 40000 UNIT/ML, QWK AS NEEDED
     Route: 058
     Dates: start: 20160609
  2. HYDRALAZINE HCL [Concomitant]
     Active Substance: HYDRALAZINE HYDROCHLORIDE
     Dosage: 100 MG, BID
     Route: 048
     Dates: start: 20130506
  3. PROCRIT [Suspect]
     Active Substance: ERYTHROPOIETIN
     Dosage: 40000 UNIT/ML, QWK AS NEEDED
     Route: 058
     Dates: start: 20151015
  4. VITAMIN D3 [Concomitant]
     Active Substance: CHOLECALCIFEROL
     Dosage: 2 TABLET, QD
     Route: 048
     Dates: start: 20071119
  5. PROCRIT [Suspect]
     Active Substance: ERYTHROPOIETIN
     Dosage: 40000 UNIT/ML, QWK AS NEEDED
     Route: 058
     Dates: start: 20161013
  6. DULCOLAX NOS [Concomitant]
     Active Substance: BISACODYL OR DOCUSATE SODIUM
     Indication: CONSTIPATION
     Dosage: UNK UNK, QD (1-3 TABLETS DAILY BASED ON DEGREE OF CONSTIPATION)
     Route: 048
  7. GABAPENTIN. [Concomitant]
     Active Substance: GABAPENTIN
     Indication: PAIN
     Dosage: 300 MG, 3 TIMES DAILY PRN
     Route: 048
     Dates: start: 20121210
  8. MELATONIN [Concomitant]
     Active Substance: MELATONIN
     Indication: INSOMNIA
     Dosage: 5 MG, QHS PRN
     Route: 048
  9. LEVALBUTEROL HCL [Concomitant]
     Active Substance: LEVALBUTEROL HYDROCHLORIDE
     Dosage: UNK UNK, TID (1.25 MG/0.5ML, TAKE 1 VIAL IN NEBULIZER)
     Dates: start: 20160114
  10. PROCRIT [Suspect]
     Active Substance: ERYTHROPOIETIN
     Dosage: 40000 UNIT/ML, QWK AS NEEDED
     Route: 058
     Dates: start: 20170105
  11. DONEPEZIL HCL [Concomitant]
     Active Substance: DONEPEZIL HYDROCHLORIDE
     Dosage: 10 MG, QD
     Route: 048
     Dates: start: 20140909
  12. PROCRIT [Suspect]
     Active Substance: ERYTHROPOIETIN
     Indication: NEPHROGENIC ANAEMIA
     Dosage: 40000 UNIT/ML, QWK AS NEEDED
     Route: 058
     Dates: start: 20141204
  13. COLACE [Concomitant]
     Active Substance: DOCUSATE SODIUM
     Dosage: 2.5 CAPSULE, Q12H
     Route: 048
     Dates: start: 20100601
  14. LASIX [Concomitant]
     Active Substance: FUROSEMIDE
     Dosage: 40 MG, QD
     Route: 048
     Dates: start: 20151210
  15. METOLAZONE. [Concomitant]
     Active Substance: METOLAZONE
     Dosage: 5 MG, QD
     Route: 048
     Dates: start: 20151210
  16. EFFEXOR XR [Concomitant]
     Active Substance: VENLAFAXINE HYDROCHLORIDE
     Dosage: 37.5 MG, QD
     Route: 048
     Dates: start: 20150115
  17. PROCRIT [Suspect]
     Active Substance: ERYTHROPOIETIN
     Indication: CHRONIC KIDNEY DISEASE
     Dosage: 40000 UNIT/ML, QWK AS NEEDED
     Route: 058
     Dates: start: 20150226
  18. PROCRIT [Suspect]
     Active Substance: ERYTHROPOIETIN
     Dosage: 40000 UNIT/ML, QWK AS NEEDED
     Route: 058
     Dates: start: 20150618
  19. CLONIDINE HCL [Concomitant]
     Active Substance: CLONIDINE HYDROCHLORIDE
     Dosage: 0.1 MG, TID
     Route: 048
     Dates: start: 20160114
  20. LEVOXYL [Concomitant]
     Active Substance: LEVOTHYROXINE SODIUM
     Dosage: 137 MCG, QD
     Route: 048
     Dates: start: 20140424
  21. PROAIR HFA [Concomitant]
     Active Substance: ALBUTEROL SULFATE
     Dosage: INHALE 1-2 PUFFS EVERY 4-6 HOURS AS NEEDED AND AS DIRECTED
     Dates: start: 20160624
  22. VOLTAREN [Concomitant]
     Active Substance: DICLOFENAC SODIUM
     Dosage: 2 G, QID
     Route: 062
     Dates: start: 20150804

REACTIONS (10)
  - Haematocrit decreased [Unknown]
  - Blood urea nitrogen/creatinine ratio increased [Unknown]
  - Red cell distribution width increased [Unknown]
  - Glomerular filtration rate decreased [Unknown]
  - Blood urea increased [Unknown]
  - Blood creatinine increased [Unknown]
  - Blood chloride decreased [Unknown]
  - Red blood cell count decreased [Unknown]
  - Haemoglobin decreased [Unknown]
  - Blood glucose increased [Unknown]

NARRATIVE: CASE EVENT DATE: 20170104
